FAERS Safety Report 8270275-X (Version None)
Quarter: 2012Q2

REPORT INFORMATION
  Report Type: 
  Country: None (occurrence: None)
  Receive Date: 20120410
  Receipt Date: 20120406
  Transmission Date: 20120825
  Serious: Yes (Other)
  Sender: FDA-Public Use
  Company Number: FR-B.I. PHARMACEUTICALS,INC./RIDGEFIELD-2012-FF-00426FF

PATIENT
  Sex: Male

DRUGS (9)
  1. LOVENOX [Concomitant]
     Route: 058
     Dates: start: 20120101, end: 20120101
  2. SUFENTANIL CITRATE [Concomitant]
     Route: 008
     Dates: start: 20120101, end: 20120101
  3. CATAPRES [Suspect]
     Indication: HYPERTENSION
     Route: 048
     Dates: start: 20120110, end: 20120118
  4. KETOPROFEN [Concomitant]
     Route: 048
     Dates: start: 20120101, end: 20120101
  5. CHIROCAINE [Concomitant]
     Route: 042
     Dates: start: 20120101, end: 20120101
  6. ACETAMINOPHEN [Concomitant]
     Route: 048
     Dates: start: 20120101, end: 20120101
  7. PANTOPRAZOLE [Concomitant]
     Route: 048
     Dates: start: 20120101, end: 20120101
  8. ACUPAN [Concomitant]
     Route: 042
     Dates: start: 20120101, end: 20120101
  9. ACETAMINOPHEN [Concomitant]
     Dosage: 10 MG/ML
     Route: 042
     Dates: start: 20120101, end: 20120101

REACTIONS (1)
  - DRUG ERUPTION [None]
